FAERS Safety Report 8601190-7 (Version None)
Quarter: 2012Q3

REPORT INFORMATION
  Report Type: 
  Country: None (occurrence: None)
  Receive Date: 20120805
  Receipt Date: 20120725
  Transmission Date: 20120928
  Serious: Yes (Death, Hospitalization, Other)
  Sender: FDA-Public Use
  Company Number: 2012MA009139

PATIENT
  Age: 24 Year
  Sex: Male

DRUGS (4)
  1. ANTIHISTAMINE [Suspect]
     Indication: INTENTIONAL DRUG MISUSE
     Dosage: PO
     Route: 048
  2. ACETAMINOPHEN WITH DEXTROMETHORPHAN [Suspect]
     Dosage: PO
     Route: 048
  3. DECONGESTANT [Suspect]
     Indication: INTENTIONAL DRUG MISUSE
     Dosage: PO
     Route: 048
  4. KADIAN [Suspect]
     Indication: INTENTIONAL DRUG MISUSE
     Dosage: PO
     Route: 048

REACTIONS (9)
  - BLOOD PRESSURE INCREASED [None]
  - ASPARTATE AMINOTRANSFERASE INCREASED [None]
  - BLOOD GLUCOSE INCREASED [None]
  - HYPOXIC-ISCHAEMIC ENCEPHALOPATHY [None]
  - SEPTIC SHOCK [None]
  - LETHARGY [None]
  - INTERNATIONAL NORMALISED RATIO DECREASED [None]
  - ACUTE RESPIRATORY DISTRESS SYNDROME [None]
  - DIFFUSE ALVEOLAR DAMAGE [None]
